FAERS Safety Report 6315316-1 (Version None)
Quarter: 2009Q3

REPORT INFORMATION
  Report Type: 
  Country: None (occurrence: None)
  Receive Date: 20090819
  Receipt Date: 20090813
  Transmission Date: 20100115
  Serious: Yes (Hospitalization)
  Sender: FDA-Public Use
  Company Number: US-AVENTIS-200917281US

PATIENT
  Sex: Female

DRUGS (3)
  1. LANTUS [Suspect]
     Route: 058
     Dates: start: 20060101, end: 20090801
  2. NOVOLOG [Concomitant]
     Dosage: DOSE: WITH MEALS
  3. ACTOS [Concomitant]
     Dosage: DOSE: SMALL DOSE

REACTIONS (3)
  - DIABETES MELLITUS INADEQUATE CONTROL [None]
  - TREMOR [None]
  - URINARY TRACT INFECTION [None]
